FAERS Safety Report 13373837 (Version 1)
Quarter: 2017Q1

REPORT INFORMATION
  Report Type: Spontaneous
  Country: US (occurrence: US)
  Receive Date: 20170327
  Receipt Date: 20170327
  Transmission Date: 20170429
  Serious: No
  Sender: FDA-Public Use
  Company Number: US-PFIZER INC-2017132092

PATIENT
  Age: 33 Year
  Sex: Female

DRUGS (1)
  1. CABERGOLINE. [Suspect]
     Active Substance: CABERGOLINE
     Indication: BLOOD PROLACTIN ABNORMAL
     Dosage: 0.5 MG, UNK (TAKE 1 TAB BY MOUTH TWO DAYS EACH WEEK)
     Route: 048

REACTIONS (6)
  - Fatigue [Unknown]
  - Headache [Unknown]
  - Malaise [Unknown]
  - Drug ineffective [Unknown]
  - Pre-existing condition improved [Unknown]
  - Condition aggravated [Unknown]
